FAERS Safety Report 22283451 (Version 1)
Quarter: 2023Q2

REPORT INFORMATION
  Report Type: Spontaneous
  Country: PT (occurrence: PT)
  Receive Date: 20230504
  Receipt Date: 20230504
  Transmission Date: 20230721
  Serious: Yes (Life-Threatening)
  Sender: FDA-Public Use
  Company Number: None

PATIENT
  Age: 60 Year
  Sex: Female
  Weight: 76 kg

DRUGS (1)
  1. GADOBUTROL [Suspect]
     Active Substance: GADOBUTROL
     Indication: Magnetic resonance imaging
     Dosage: 7.6 ML, ONCE
     Route: 042
     Dates: start: 20230404, end: 20230404

REACTIONS (6)
  - Gait disturbance [Unknown]
  - Respiratory arrest [Unknown]
  - Rash [Unknown]
  - Vision blurred [Unknown]
  - Chest pain [Unknown]
  - Presyncope [Unknown]

NARRATIVE: CASE EVENT DATE: 20230404
